FAERS Safety Report 7854057-6 (Version None)
Quarter: 2011Q4

REPORT INFORMATION
  Report Type: 
  Country: None (occurrence: None)
  Receive Date: 20111026
  Receipt Date: 20111024
  Transmission Date: 20120403
  Serious: No
  Sender: FDA-Public Use
  Company Number: US-PFIZER INC-2011181483

PATIENT
  Sex: Female
  Weight: 61.224 kg

DRUGS (2)
  1. LYRICA [Suspect]
     Indication: HERPES ZOSTER
     Dosage: 75 MG, 2X/DAY
     Route: 048
     Dates: start: 20110801, end: 20110801
  2. LYRICA [Suspect]
     Dosage: 75 MG, 1X/DAY
     Route: 048
     Dates: start: 20110801

REACTIONS (7)
  - INSOMNIA [None]
  - KYPHOSIS [None]
  - VISION BLURRED [None]
  - DIZZINESS [None]
  - NECK PAIN [None]
  - POLLAKIURIA [None]
  - DRY MOUTH [None]
